FAERS Safety Report 9934882 (Version 1)
Quarter: 2014Q1

REPORT INFORMATION
  Report Type: Spontaneous
  Country: DE (occurrence: DE)
  Receive Date: 20140228
  Receipt Date: 20140228
  Transmission Date: 20141002
  Serious: Yes (Other)
  Sender: FDA-Public Use
  Company Number: PHHY2014DE023827

PATIENT
  Age: 92 Year
  Sex: Female

DRUGS (2)
  1. RASILEZ [Suspect]
     Dosage: UNK UKN, UNK
     Dates: start: 201208
  2. DAFIRO HCT [Suspect]
     Dosage: UNK UKN, UNK
     Dates: start: 2012

REACTIONS (2)
  - Skin cancer [Unknown]
  - Renal impairment [Unknown]
